FAERS Safety Report 8280397-5 (Version None)
Quarter: 2012Q2

REPORT INFORMATION
  Report Type: 
  Country: None (occurrence: None)
  Receive Date: 20120412
  Receipt Date: 20110627
  Transmission Date: 20120825
  Serious: No
  Sender: FDA-Public Use
  Company Number: US-ASTRAZENECA-2011SE38795

PATIENT
  Age: 73 Year
  Sex: Female

DRUGS (3)
  1. EAR PILL [Concomitant]
  2. NEXIUM [Suspect]
     Route: 048
  3. COUGH SYRUP [Concomitant]

REACTIONS (11)
  - NASOPHARYNGITIS [None]
  - LUNG DISORDER [None]
  - SPINAL DISORDER [None]
  - DIARRHOEA [None]
  - DRUG DOSE OMISSION [None]
  - SCOLIOSIS [None]
  - OSTEOPOROSIS [None]
  - GASTRIC DISORDER [None]
  - WEIGHT DECREASED [None]
  - HEADACHE [None]
  - ABDOMINAL DISCOMFORT [None]
